FAERS Safety Report 5528432-9 (Version None)
Quarter: 2007Q4

REPORT INFORMATION
  Report Type: 
  Country: None (occurrence: None)
  Receive Date: 20071128
  Receipt Date: 20071122
  Transmission Date: 20080405
  Serious: Yes (Other)
  Sender: FDA-Public Use
  Company Number: CA-ROXANE LABORATORIES, INC-2007-DE-06935GD

PATIENT
  Age: 37 Year
  Sex: Male

DRUGS (5)
  1. PREDNISONE TAB [Suspect]
     Indication: ALVEOLITIS ALLERGIC
  2. PREDNISONE TAB [Suspect]
  3. BUDESONIDE [Suspect]
     Indication: INTERSTITIAL LUNG DISEASE
  4. AZATHIOPRINE [Suspect]
     Indication: ALVEOLITIS ALLERGIC
  5. ALBUTEROL [Suspect]
     Indication: INTERSTITIAL LUNG DISEASE

REACTIONS (2)
  - DISEASE PROGRESSION [None]
  - DRUG INEFFECTIVE [None]
